FAERS Safety Report 7163582-5 (Version None)
Quarter: 2010Q4

REPORT INFORMATION
  Report Type: 
  Country: None (occurrence: None)
  Receive Date: 20101215
  Receipt Date: 20100511
  Transmission Date: 20110411
  Serious: Yes (Other)
  Sender: FDA-Public Use
  Company Number: FR-PFIZER INC-2010059503

PATIENT

DRUGS (3)
  1. LYRICA [Suspect]
     Dosage: 50 MG, 2X/DAY
  2. LEVOTHYROX [Concomitant]
  3. NEXIUM [Concomitant]

REACTIONS (1)
  - CYTOLYTIC HEPATITIS [None]
